FAERS Safety Report 25788240 (Version 1)
Quarter: 2025Q3

REPORT INFORMATION
  Report Type: Spontaneous
  Country: US (occurrence: US)
  Receive Date: 20250910
  Receipt Date: 20250910
  Transmission Date: 20251020
  Serious: Yes (Life-Threatening, Hospitalization)
  Sender: MYLAN
  Company Number: US-MYLANLABS-2025M1076261

PATIENT
  Age: 57 Year
  Sex: Male

DRUGS (2)
  1. FENTANYL [Suspect]
     Active Substance: FENTANYL
     Indication: Product used for unknown indication
  2. NALOXONE [Suspect]
     Active Substance: NALOXONE
     Indication: Reversal of opiate activity

REACTIONS (3)
  - Hashimoto^s encephalopathy [Recovering/Resolving]
  - Drug abuse [Recovering/Resolving]
  - Drug ineffective [Unknown]
